FAERS Safety Report 10295002 (Version 2)
Quarter: 2014Q3

REPORT INFORMATION
  Report Type: Spontaneous
  Country: FR (occurrence: FR)
  Receive Date: 20140710
  Receipt Date: 20140822
  Transmission Date: 20150326
  Serious: Yes (Hospitalization, Other)
  Sender: FDA-Public Use
  Company Number: FR-TEVA-492883ISR

PATIENT
  Age: 28 Year
  Sex: Female

DRUGS (9)
  1. TEMERIT 5 MG COMPRIME QUADRISECABLE [Suspect]
     Active Substance: NEBIVOLOL
     Dosage: 5 MILLIGRAM DAILY;
     Route: 048
     Dates: start: 201402, end: 20140611
  2. METHYLPREDNISOLONE MYLAN [Suspect]
     Active Substance: METHYLPREDNISOLONE
     Dosage: 200 MILLIGRAM DAILY;
     Route: 042
     Dates: start: 20140308, end: 20140607
  3. VELBE 10 MG POUDRE POUR SOLUTION INJECTABLE IV [Suspect]
     Active Substance: VINBLASTINE
     Indication: LYMPHOMA
     Dosage: 10 MILLIGRAM DAILY;
     Route: 042
     Dates: start: 20140222, end: 20140607
  4. INEXIUM 40 MG COMPRIME GASTRO-RESISTANT [Suspect]
     Active Substance: ESOMEPRAZOLE
     Dosage: 40 MILLIGRAM DAILY;
     Route: 048
  5. DOXORUBICINE TEVA [Suspect]
     Active Substance: DOXORUBICIN
     Indication: LYMPHOMA
     Dosage: 41.5 MILLIGRAM DAILY;
     Route: 042
     Dates: start: 20140222, end: 20140607
  6. BLEOMYCINE BELLON 15 MG POUDRE POUR SOLUTION INJECTABLE [Suspect]
     Active Substance: BLEOMYCIN SULFATE
     Indication: LYMPHOMA
     Dosage: 9 MILLIGRAM DAILY;
     Route: 042
     Dates: start: 20140222, end: 20140607
  7. CLIMASTON [Concomitant]
     Active Substance: ESTRADIOL\PROGESTERONE
     Dosage: 10 MILLIGRAM DAILY;
     Route: 048
  8. DACARBAZINE LIPOMED [Suspect]
     Active Substance: DACARBAZINE
     Indication: LYMPHOMA
     Dosage: 200 MILLIGRAM DAILY;
     Route: 042
     Dates: start: 20140222, end: 20140607
  9. VFEND [Suspect]
     Active Substance: VORICONAZOLE
     Dosage: 2 TABLET DAILY;
     Route: 048

REACTIONS (4)
  - Extremity necrosis [Not Recovered/Not Resolved]
  - Hypoxic-ischaemic encephalopathy [Unknown]
  - Raynaud^s phenomenon [Not Recovered/Not Resolved]
  - Cardio-respiratory arrest [Unknown]

NARRATIVE: CASE EVENT DATE: 201405
